FAERS Safety Report 15334946 (Version 1)
Quarter: 2018Q3

REPORT INFORMATION
  Report Type: Spontaneous
  Country: US (occurrence: US)
  Receive Date: 20180830
  Receipt Date: 20180830
  Transmission Date: 20181010
  Serious: Yes (Other)
  Sender: FDA-Public Use
  Company Number: US-PFIZER INC-2018309896

PATIENT
  Age: 64 Year
  Sex: Female

DRUGS (15)
  1. ENBREL [Suspect]
     Active Substance: ETANERCEPT
     Indication: RHEUMATOID ARTHRITIS
     Dosage: UNK
  2. FLU VACCINE VII [Concomitant]
     Active Substance: INFLUENZA VIRUS VACCINE
     Dosage: UNK
     Dates: start: 2017
  3. HCQ [Suspect]
     Active Substance: HYDROXYCHLOROQUINE SULFATE
  4. PROAIR HFA [Concomitant]
     Active Substance: ALBUTEROL SULFATE
     Dosage: 90 MU, Q6H AS NECESSARY
  5. TOFACITINIB [Concomitant]
     Active Substance: TOFACITINIB
     Dosage: 11 MG, DAILY (QD)
     Route: 048
  6. PNEUMOCOCCAL VACCINE POLYVALENT NOS [Concomitant]
     Active Substance: PNEUMOCOCCAL VACCINE POLYVALENT
     Dosage: UNK
  7. GABAPENTIN. [Concomitant]
     Active Substance: GABAPENTIN
     Dosage: 100 MG, DAILY (QD)
     Route: 048
  8. LIPITOR [Concomitant]
     Active Substance: ATORVASTATIN CALCIUM
     Dosage: 40 MG, 1X/DAY (BEDTIME)
     Route: 048
  9. METHOTREXATE SODIUM. [Suspect]
     Active Substance: METHOTREXATE SODIUM
     Route: 058
  10. FOLIC ACID. [Concomitant]
     Active Substance: FOLIC ACID
     Dosage: 3 MG, DAILY (QD)
     Route: 048
  11. GABAPENTIN. [Concomitant]
     Active Substance: GABAPENTIN
     Dosage: 200 MG, DAILY (QD)
     Route: 048
  12. MELOXICAM. [Concomitant]
     Active Substance: MELOXICAM
     Dosage: 75 MG, AS NEEDED
     Route: 048
  13. RASUVO [Concomitant]
     Active Substance: METHOTREXATE SODIUM
     Indication: RHEUMATOID ARTHRITIS
     Dosage: 20 MG, WEEKLY
     Route: 058
     Dates: start: 2017
  14. HUMIRA [Suspect]
     Active Substance: ADALIMUMAB
     Indication: RHEUMATOID ARTHRITIS
     Dosage: 40 MG, ONCE EVENRY TWO WEEKS (Q2WK)
     Route: 058
     Dates: end: 20180724
  15. ASPIRIN. [Concomitant]
     Active Substance: ASPIRIN
     Dosage: 81 MG, DAILY
     Route: 048

REACTIONS (15)
  - Diarrhoea [Unknown]
  - Fatigue [Unknown]
  - Pain in jaw [Unknown]
  - Rheumatoid nodule [Unknown]
  - Sjogren^s syndrome [Unknown]
  - Influenza [Unknown]
  - Musculoskeletal stiffness [Unknown]
  - Gait disturbance [Unknown]
  - Splenomegaly [Unknown]
  - Hypersensitivity [Unknown]
  - Tinnitus [Unknown]
  - Drug ineffective [Unknown]
  - Vertigo [Recovered/Resolved]
  - Peripheral swelling [Unknown]
  - Pain in extremity [Unknown]

NARRATIVE: CASE EVENT DATE: 201801
